FAERS Safety Report 7622488-5 (Version None)
Quarter: 2011Q3

REPORT INFORMATION
  Report Type: 
  Country: None (occurrence: None)
  Receive Date: 20110718
  Receipt Date: 20110718
  Transmission Date: 20111222
  Serious: Yes (Other)
  Sender: FDA-Public Use
  Company Number: None

PATIENT
  Sex: Male
  Weight: 110 kg

DRUGS (1)
  1. REMICADE [Suspect]
     Indication: PSORIATIC ARTHROPATHY
     Dosage: 500MG Q7WKS IV
     Route: 042
     Dates: start: 20090304, end: 20110518

REACTIONS (2)
  - TONGUE DISORDER [None]
  - OROPHARYNGEAL PAIN [None]
